FAERS Safety Report 7913242-5 (Version None)
Quarter: 2011Q4

REPORT INFORMATION
  Report Type: 
  Country: None (occurrence: None)
  Receive Date: 20111114
  Receipt Date: 20111104
  Transmission Date: 20120403
  Serious: Yes (Other)
  Sender: FDA-Public Use
  Company Number: US-AMGEN-KDL216350

PATIENT
  Age: 41 Year
  Sex: Female

DRUGS (8)
  1. DIPHTHERIA AND TETANUS TOXOIDS AND PERTUSSIS [Concomitant]
     Dosage: UNK
  2. CRESTOR [Concomitant]
     Dosage: UNK
  3. ENBREL [Suspect]
     Indication: RHEUMATOID ARTHRITIS
     Dosage: 50 MG, QWK
     Route: 058
     Dates: start: 19981201
  4. FLUVAX [Concomitant]
  5. NEXIUM [Concomitant]
     Dosage: UNK
  6. MESALAMINE [Concomitant]
     Dosage: UNK
  7. SYNTHROID [Concomitant]
     Dosage: UNK
  8. LOVAZA [Concomitant]
     Dosage: UNK

REACTIONS (22)
  - NEPHRITIS [None]
  - TACHYCARDIA [None]
  - ANXIETY [None]
  - TOXICITY TO VARIOUS AGENTS [None]
  - HYPERTENSION [None]
  - ARTHRALGIA [None]
  - OEDEMA PERIPHERAL [None]
  - UPPER RESPIRATORY TRACT INFECTION [None]
  - PANIC REACTION [None]
  - PYREXIA [None]
  - INJECTION SITE PAIN [None]
  - RENAL FAILURE CHRONIC [None]
  - BLOOD PRESSURE FLUCTUATION [None]
  - DIZZINESS [None]
  - VACCINATION COMPLICATION [None]
  - RENAL FAILURE ACUTE [None]
  - PAIN [None]
  - INFECTION [None]
  - JOINT SWELLING [None]
  - STRESS [None]
  - COLITIS ULCERATIVE [None]
  - BRONCHITIS [None]
